FAERS Safety Report 4595344-7 (Version None)
Quarter: 2005Q1

REPORT INFORMATION
  Report Type: 
  Country: None (occurrence: None)
  Receive Date: 20050223
  Receipt Date: 20050201
  Transmission Date: 20050727
  Serious: Yes (Death)
  Sender: FDA-Public Use
  Company Number: COT_0008_2005

PATIENT

DRUGS (1)
  1. ILOPROST [Suspect]
     Indication: PULMONARY HYPERTENSION
     Dosage: 10  IH

REACTIONS (2)
  - HAEMOPTYSIS [None]
  - MEDIASTINAL HAEMORRHAGE [None]
